FAERS Safety Report 13657019 (Version 6)
Quarter: 2021Q1

REPORT INFORMATION
  Report Type: Spontaneous
  Country: IE (occurrence: IE)
  Receive Date: 20170615
  Receipt Date: 20210106
  Transmission Date: 20210419
  Serious: Yes (Other)
  Sender: FDA-Public Use
  Company Number: IE-ABBVIE-17P-229-2007850-00

PATIENT
  Sex: Male

DRUGS (2)
  1. PROSTAP 3 [Suspect]
     Active Substance: LEUPROLIDE ACETATE
     Indication: PRODUCT USED FOR UNKNOWN INDICATION
     Dosage: 11.25 MILLIGRAM, Q3MONTHS
     Route: 065
  2. PROSTAP SR [Suspect]
     Active Substance: LEUPROLIDE ACETATE
     Indication: PROSTATE CANCER
     Dosage: 3.75 MILLIGRAM
     Route: 065
     Dates: start: 201406

REACTIONS (12)
  - Romberg test positive [Unknown]
  - Pain in extremity [Unknown]
  - Haematoma muscle [Unknown]
  - Loss of proprioception [Unknown]
  - Spinal cord injury [Unknown]
  - Atrial fibrillation [Unknown]
  - Hyperhidrosis [Unknown]
  - Flushing [Unknown]
  - Peripheral sensory neuropathy [Not Recovered/Not Resolved]
  - Neuralgia [Unknown]
  - Fall [Unknown]
  - Muscle contusion [Unknown]
